FAERS Safety Report 7691917-3 (Version None)
Quarter: 2011Q3

REPORT INFORMATION
  Report Type: 
  Country: None (occurrence: None)
  Receive Date: 20110818
  Receipt Date: 20110809
  Transmission Date: 20111222
  Serious: Yes (Hospitalization)
  Sender: FDA-Public Use
  Company Number: US-JNJFOC-20110512853

PATIENT
  Age: 52 Year
  Sex: Male
  Weight: 83.92 kg

DRUGS (3)
  1. CELLCEPT [Concomitant]
     Indication: PROPHYLAXIS AGAINST TRANSPLANT REJECTION
  2. PROGRAF [Concomitant]
     Indication: PROPHYLAXIS AGAINST TRANSPLANT REJECTION
  3. ASPIRIN [Suspect]
     Indication: PRODUCT USED FOR UNKNOWN INDICATION
     Dosage: 81-162 MG PER DAY
     Dates: start: 20060101

REACTIONS (10)
  - KIDNEY FIBROSIS [None]
  - VOMITING [None]
  - PRODUCT TASTE ABNORMAL [None]
  - DEHYDRATION [None]
  - ABDOMINAL PAIN UPPER [None]
  - BLOOD UREA INCREASED [None]
  - DIARRHOEA [None]
  - PRODUCT ODOUR ABNORMAL [None]
  - BLOOD CREATININE INCREASED [None]
  - DECREASED APPETITE [None]
